FAERS Safety Report 22083717 (Version 1)
Quarter: 2023Q1

REPORT INFORMATION
  Report Type: Spontaneous
  Country: CN (occurrence: None)
  Receive Date: 20230310
  Receipt Date: 20230310
  Transmission Date: 20230418
  Serious: Yes (Hospitalization)
  Sender: FDA-Public Use
  Company Number: 2023A054350

PATIENT
  Age: 5547 Day
  Sex: Female
  Weight: 54 kg

DRUGS (2)
  1. QUETIAPINE FUMARATE [Suspect]
     Active Substance: QUETIAPINE FUMARATE
     Indication: Affective disorder
     Dosage: 200MG, 2.000000 TABLETS QM
     Route: 048
     Dates: start: 20230210, end: 20230228
  2. QUETIAPINE FUMARATE [Suspect]
     Active Substance: QUETIAPINE FUMARATE
     Indication: Affective disorder
     Dosage: DOSE REDUCED TO 1 TABLET QN
     Route: 048

REACTIONS (1)
  - Sedation complication [Recovering/Resolving]

NARRATIVE: CASE EVENT DATE: 20230227
